FAERS Safety Report 16464238 (Version 1)
Quarter: 2019Q3

REPORT INFORMATION
  Report Type: Spontaneous
  Country: US (occurrence: US)
  Receive Date: 20190620
  Receipt Date: 20190620
  Transmission Date: 20191004
  Serious: Yes (Life-Threatening)
  Sender: FDA-Public Use
  Company Number: None

PATIENT
  Age: 49 Year
  Sex: Female
  Weight: 69.4 kg

DRUGS (12)
  1. LACTATED RINGERS SOLUTION [Concomitant]
     Active Substance: CALCIUM CHLORIDE\POTASSIUM CHLORIDE\SODIUM CHLORIDE\SODIUM LACTATE
     Dates: start: 20190607, end: 20190607
  2. ALBUTEROL. [Concomitant]
     Active Substance: ALBUTEROL
     Dates: start: 20190607, end: 20190607
  3. LIDOCAINE. [Concomitant]
     Active Substance: LIDOCAINE
     Dates: start: 20190607, end: 20190607
  4. RINGERS LACTATE [Concomitant]
     Active Substance: CALCIUM CHLORIDE\POTASSIUM CHLORIDE\SODIUM LACTATE
     Dates: start: 20190607, end: 20190607
  5. FENTANYL. [Concomitant]
     Active Substance: FENTANYL
     Dates: start: 20190607, end: 20190607
  6. PROPOFOL. [Concomitant]
     Active Substance: PROPOFOL
     Dates: start: 20190607, end: 20190607
  7. KETOROLAC [Concomitant]
     Active Substance: KETOROLAC TROMETHAMINE
     Dates: start: 20190607, end: 20190607
  8. ROCURONIUM [Concomitant]
     Active Substance: ROCURONIUM BROMIDE
     Dates: start: 20190607, end: 20190607
  9. ONDANSETRON [Concomitant]
     Active Substance: ONDANSETRON
     Dates: start: 20190607, end: 20190607
  10. BRIDION [Suspect]
     Active Substance: SUGAMMADEX
     Indication: NEUROMUSCULAR BLOCKADE REVERSAL
     Dosage: ?          OTHER FREQUENCY:ONCE;?
     Route: 040
     Dates: start: 20190607, end: 20190607
  11. MIDAZOLAM [Concomitant]
     Active Substance: MIDAZOLAM HYDROCHLORIDE
     Dates: start: 20190607, end: 20190607
  12. DEXAMETHASONE. [Concomitant]
     Active Substance: DEXAMETHASONE
     Dates: start: 20190607, end: 20190607

REACTIONS (5)
  - Heart rate decreased [None]
  - Electrocardiogram ST segment elevation [None]
  - Oxygen saturation decreased [None]
  - Bronchospasm [None]
  - Blood pressure systolic decreased [None]

NARRATIVE: CASE EVENT DATE: 20190607
